FAERS Safety Report 4684661-8 (Version None)
Quarter: 2005Q2

REPORT INFORMATION
  Report Type: 
  Country: None (occurrence: None)
  Receive Date: 20050607
  Receipt Date: 20050405
  Transmission Date: 20051028
  Serious: Yes (Disabling)
  Sender: FDA-Public Use
  Company Number: US-MERCK-0504USA00593

PATIENT
  Age: 40 Year
  Sex: Female
  Weight: 51 kg

DRUGS (6)
  1. SUBOXONE [Concomitant]
     Route: 048
  2. ZOCOR [Suspect]
     Indication: HYPERCHOLESTEROLAEMIA
     Route: 048
     Dates: start: 20050211, end: 20050402
  3. ZOCOR [Suspect]
     Indication: HYPERLIPIDAEMIA
     Route: 048
     Dates: start: 20050211, end: 20050402
  4. TRAZODONE HYDROCHLORIDE [Concomitant]
     Route: 065
  5. TRAZODONE HYDROCHLORIDE [Concomitant]
     Route: 048
     Dates: start: 20040107
  6. MICRONOR [Concomitant]
     Route: 048

REACTIONS (4)
  - INSOMNIA [None]
  - MUSCLE SPASMS [None]
  - MUSCLE TWITCHING [None]
  - MYALGIA [None]
